FAERS Safety Report 25905955 (Version 1)
Quarter: 2025Q4

REPORT INFORMATION
  Report Type: Spontaneous
  Country: US (occurrence: US)
  Receive Date: 20251010
  Receipt Date: 20251010
  Transmission Date: 20260117
  Serious: Yes (Hospitalization, Other)
  Sender: CHEPLAPHARM
  Company Number: US-CHEPLA-2025011538

PATIENT
  Sex: Female

DRUGS (14)
  1. QUETIAPINE [Suspect]
     Active Substance: QUETIAPINE
     Indication: Product used for unknown indication
  2. NUPLAZID [Suspect]
     Active Substance: PIMAVANSERIN TARTRATE
     Indication: Parkinson^s disease
     Dosage: 34 MILLIGRAM, ONCE DAILY; ONGOING?DAILY DOSE: 34 MILLIGRAM
     Route: 048
     Dates: start: 20250703
  3. NUPLAZID [Suspect]
     Active Substance: PIMAVANSERIN TARTRATE
     Indication: Drug ineffective
     Dosage: 34 MILLIGRAM, ONCE DAILY; ONGOING?DAILY DOSE: 34 MILLIGRAM
     Route: 048
     Dates: start: 20250703
  4. NUPLAZID [Suspect]
     Active Substance: PIMAVANSERIN TARTRATE
     Indication: Parkinson^s disease psychosis
     Dosage: 34 MILLIGRAM, ONCE DAILY; ONGOING?DAILY DOSE: 34 MILLIGRAM
     Route: 048
     Dates: start: 20250703
  5. NUPLAZID [Suspect]
     Active Substance: PIMAVANSERIN TARTRATE
     Indication: Dementia
     Dosage: 34 MILLIGRAM, ONCE DAILY; ONGOING?DAILY DOSE: 34 MILLIGRAM
     Route: 048
     Dates: start: 20250703
  6. ABILIFY [Suspect]
     Active Substance: ARIPIPRAZOLE
     Indication: Product used for unknown indication
  7. CLOZARIL [Suspect]
     Active Substance: CLOZAPINE
     Indication: Product used for unknown indication
     Dates: start: 202508
  8. RISPERDAL [Suspect]
     Active Substance: RISPERIDONE
     Indication: Product used for unknown indication
  9. CLOZAPINE [Suspect]
     Active Substance: CLOZAPINE
     Indication: Product used for unknown indication
  10. TRAZODONE [Concomitant]
     Active Substance: TRAZODONE HYDROCHLORIDE
  11. PANTOPRAZOLE [Concomitant]
     Active Substance: PANTOPRAZOLE
  12. CITALOPRAM [Concomitant]
     Active Substance: CITALOPRAM
  13. SUCRALFATE [Concomitant]
     Active Substance: SUCRALFATE
  14. NITROFURANTOIN [Concomitant]
     Active Substance: NITROFURANTOIN

REACTIONS (8)
  - Myocardial necrosis marker increased [Unknown]
  - Hallucination, visual [Not Recovered/Not Resolved]
  - Delusion [Not Recovered/Not Resolved]
  - Logorrhoea [Unknown]
  - Sleep disorder [Not Recovered/Not Resolved]
  - Mobility decreased [Recovering/Resolving]
  - Loss of personal independence in daily activities [Recovering/Resolving]
  - Gait disturbance [Recovering/Resolving]
